FAERS Safety Report 11830241 (Version 3)
Quarter: 2015Q4

REPORT INFORMATION
  Report Type: Spontaneous
  Country: US (occurrence: US)
  Receive Date: 20151214
  Receipt Date: 20151214
  Transmission Date: 20160305
  Serious: Yes (Life-Threatening, Disabling)
  Sender: FDA-Public Use
  Company Number: US-JNJFOC-20151108333

PATIENT
  Sex: Male
  Weight: 88.45 kg

DRUGS (1)
  1. LEVAQUIN [Suspect]
     Active Substance: LEVOFLOXACIN
     Indication: URINARY TRACT INFECTION
     Route: 048
     Dates: start: 20050515, end: 20050525

REACTIONS (6)
  - Tendon disorder [Unknown]
  - Suicidal ideation [Unknown]
  - Visual impairment [Unknown]
  - Neuropathy peripheral [Unknown]
  - Insomnia [Unknown]
  - Head discomfort [Unknown]

NARRATIVE: CASE EVENT DATE: 20050615
